FAERS Safety Report 20663004 (Version 1)
Quarter: 2022Q2

REPORT INFORMATION
  Report Type: Report from Study
  Country: IT (occurrence: IT)
  Receive Date: 20220401
  Receipt Date: 20220401
  Transmission Date: 20220720
  Serious: Yes (Other)
  Sender: FDA-Public Use
  Company Number: IT-NOVARTISPH-NVSC2022IT071987

PATIENT
  Age: 37 Year
  Sex: Male

DRUGS (1)
  1. CYCLOSPORINE [Suspect]
     Active Substance: CYCLOSPORINE
     Indication: Immune thrombocytopenia
     Dosage: UNK
     Route: 065

REACTIONS (23)
  - Thrombosis [Unknown]
  - Chest pain [Unknown]
  - Pain [Unknown]
  - Swelling [Unknown]
  - Skin warm [Unknown]
  - Erythema [Unknown]
  - Dyspnoea [Unknown]
  - Haematochezia [Unknown]
  - Blood urine present [Unknown]
  - Gingival bleeding [Unknown]
  - Platelet count abnormal [Unknown]
  - Migraine [Unknown]
  - Headache [Unknown]
  - Anxiety [Unknown]
  - Arthralgia [Unknown]
  - Cognitive disorder [Unknown]
  - Adverse drug reaction [Unknown]
  - Asthenia [Unknown]
  - Negative thoughts [Unknown]
  - Decreased appetite [Unknown]
  - Hyperphagia [Unknown]
  - Fatigue [Unknown]
  - Drug ineffective [Unknown]
